FAERS Safety Report 5309667-7 (Version None)
Quarter: 2007Q2

REPORT INFORMATION
  Report Type: 
  Country: None (occurrence: None)
  Receive Date: 20070427
  Receipt Date: 20060925
  Transmission Date: 20071010
  Serious: No
  Sender: FDA-Public Use
  Company Number: US-GLAXOSMITHKLINE-A0621299A

PATIENT
  Sex: Female

DRUGS (5)
  1. DEXEDRINE [Suspect]
     Indication: DRUG USE FOR UNKNOWN INDICATION
     Route: 048
  2. PROZAC [Concomitant]
  3. ESTRACE [Concomitant]
  4. PRILOSEC [Concomitant]
  5. XANAX [Concomitant]

REACTIONS (1)
  - SOMNOLENCE [None]
